FAERS Safety Report 17887465 (Version 1)
Quarter: 2020Q3

REPORT INFORMATION
  Report Type: Spontaneous
  Country: FR (occurrence: FR)
  Receive Date: 20200612
  Receipt Date: 20200612
  Transmission Date: 20201104
  Serious: Yes (Hospitalization)
  Sender: FDA-Public Use
  Company Number: FR-ROCHE-2616500

PATIENT
  Age: 62 Year
  Sex: Female

DRUGS (1)
  1. ALECTINIB. [Suspect]
     Active Substance: ALECTINIB
     Indication: NEOPLASM MALIGNANT
     Route: 048
     Dates: start: 202001, end: 202003

REACTIONS (2)
  - Hepatic cirrhosis [Not Recovered/Not Resolved]
  - Hepatitis [Not Recovered/Not Resolved]

NARRATIVE: CASE EVENT DATE: 202002
